FAERS Safety Report 25225596 (Version 1)
Quarter: 2025Q2

REPORT INFORMATION
  Report Type: Spontaneous
  Country: DZ (occurrence: DZ)
  Receive Date: 20250422
  Receipt Date: 20250422
  Transmission Date: 20250716
  Serious: Yes (Death, Hospitalization)
  Sender: PFIZER
  Company Number: DZ-PFIZER INC-202500084289

PATIENT
  Age: 30 Year
  Sex: Female

DRUGS (3)
  1. TYGACIL [Suspect]
     Active Substance: TIGECYCLINE
     Indication: Meningitis
  2. COLISTIN [Suspect]
     Active Substance: COLISTIN
     Indication: Meningitis
  3. AMIKACIN [Suspect]
     Active Substance: AMIKACIN
     Indication: Meningitis

REACTIONS (1)
  - Post procedural complication [Fatal]
